FAERS Safety Report 4888619-5 (Version None)
Quarter: 2005Q4

REPORT INFORMATION
  Report Type: 
  Country: None (occurrence: None)
  Receive Date: 20051215
  Receipt Date: 20050419
  Transmission Date: 20060501
  Serious: Yes (Life-Threatening, Hospitalization, Other)
  Sender: FDA-Public Use
  Company Number: 2005059629

PATIENT
  Sex: Female

DRUGS (5)
  1. BEXTRA [Suspect]
     Indication: ARTHRITIS
     Dosage: 10 MG (10 MG 1 IN 1 D) ORAL
     Route: 048
     Dates: start: 20031201, end: 20050408
  2. METOPROLOL SUCCINATE [Concomitant]
  3. LEVOTHYROXINE SODIUM [Concomitant]
  4. RABEPRAZOLE SODIUM [Concomitant]
  5. PREDNISONE [Concomitant]

REACTIONS (7)
  - CEREBROVASCULAR ACCIDENT [None]
  - CHEST PAIN [None]
  - DIFFICULTY IN WALKING [None]
  - DYSPEPSIA [None]
  - INFLAMMATION [None]
  - MYOCARDIAL INFARCTION [None]
  - RASH [None]
